FAERS Safety Report 4676224-5 (Version None)
Quarter: 2005Q2

REPORT INFORMATION
  Report Type: 
  Country: None (occurrence: None)
  Receive Date: 20050527
  Receipt Date: 20050201
  Transmission Date: 20051028
  Serious: No
  Sender: FDA-Public Use
  Company Number: US-GLAXOSMITHKLINE-A0543333A

PATIENT
  Age: 32 Year
  Sex: Female

DRUGS (2)
  1. WELLBUTRIN XL [Suspect]
     Indication: ILL-DEFINED DISORDER
     Dosage: 300MG PER DAY
     Route: 048
     Dates: start: 20050120
  2. VERAPAMIL [Concomitant]

REACTIONS (6)
  - AGITATION [None]
  - GINGIVAL PRURITUS [None]
  - LOCAL SWELLING [None]
  - MOOD ALTERED [None]
  - MOUTH ULCERATION [None]
  - SENSITIVITY OF TEETH [None]
